FAERS Safety Report 6973216-8 (Version None)
Quarter: 2010Q3

REPORT INFORMATION
  Report Type: 
  Country: None (occurrence: None)
  Receive Date: 20100909
  Receipt Date: 20100902
  Transmission Date: 20110219
  Serious: Yes (Death, Hospitalization)
  Sender: FDA-Public Use
  Company Number: PL-ROCHE-723846

PATIENT
  Sex: Female
  Weight: 68 kg

DRUGS (9)
  1. TOCILIZUMAB [Suspect]
     Indication: RHEUMATOID ARTHRITIS
     Route: 042
     Dates: start: 20061128, end: 20070807
  2. TOCILIZUMAB [Suspect]
     Route: 042
     Dates: start: 20070904, end: 20100901
  3. PLACEBO [Suspect]
     Indication: RHEUMATOID ARTHRITIS
     Route: 042
     Dates: start: 20060808, end: 20061103
  4. METHOTREXATE [Suspect]
     Indication: RHEUMATOID ARTHRITIS
     Dosage: DOSE AND FREQUENCY: NOT REPORTED
     Route: 065
  5. PREDNISONE [Concomitant]
     Dates: start: 20100414
  6. PANTOPRAZOLE [Concomitant]
     Dates: start: 20100810
  7. POTASSIUM CHLORIDE [Concomitant]
     Dates: start: 20100819
  8. ESPUMISAN [Concomitant]
     Dates: start: 20100823, end: 20100830
  9. ESSENTIALE FORTE [Concomitant]
     Dates: start: 20100810, end: 20100830

REACTIONS (1)
  - ACUTE HEPATIC FAILURE [None]
